FAERS Safety Report 9742064 (Version 2)
Quarter: 2014Q1

REPORT INFORMATION
  Report Type: Report from Study
  Country: CA (occurrence: CA)
  Receive Date: 20131210
  Receipt Date: 20140106
  Transmission Date: 20141002
  Serious: Yes (Hospitalization, Other)
  Sender: FDA-Public Use
  Company Number: CA-JNJFOC-20131203316

PATIENT
  Age: 47 Year
  Sex: Female
  Weight: 113.4 kg

DRUGS (16)
  1. REMICADE [Suspect]
     Indication: CROHN^S DISEASE
     Route: 042
     Dates: start: 20090327, end: 20130710
  2. REMICADE [Suspect]
     Indication: CROHN^S DISEASE
     Route: 042
     Dates: start: 20131204, end: 20131204
  3. REMICADE [Suspect]
     Indication: CROHN^S DISEASE
     Route: 042
     Dates: start: 2008
  4. REMICADE [Suspect]
     Indication: CROHN^S DISEASE
     Route: 042
     Dates: start: 2011, end: 2013
  5. FOLIC ACID [Concomitant]
     Route: 048
  6. ESTROGEN [Concomitant]
     Route: 048
  7. IBUPROFEN [Concomitant]
     Route: 065
  8. OMEGA 3 [Concomitant]
     Route: 065
  9. VITAMIN D3 [Concomitant]
     Route: 065
  10. PRIMAL DEFENSE (PROBIOTIC) [Concomitant]
     Route: 065
  11. OXYCODONE [Concomitant]
     Dosage: SUSTENDED RELEASE
     Route: 065
  12. OXYCODONE [Concomitant]
     Dosage: IMMEDIATED RELEASE
     Route: 065
  13. DEXAMETHASONE [Concomitant]
     Route: 048
  14. METHOTREXATE [Concomitant]
     Route: 048
  15. EPA [Concomitant]
     Dosage: 400 (UNIT UNSPECIFIED)
     Route: 065
  16. DOCOSAHEXAENOIC ACID [Concomitant]
     Dosage: 200
     Route: 048

REACTIONS (5)
  - Lupus-like syndrome [Unknown]
  - Cholecystectomy [Unknown]
  - Arthralgia [Unknown]
  - Drug specific antibody present [Unknown]
  - Drug ineffective [Unknown]
